FAERS Safety Report 4961393-X (Version None)
Quarter: 2006Q2

REPORT INFORMATION
  Report Type: 
  Country: None (occurrence: None)
  Receive Date: 20060403
  Receipt Date: 20050930
  Transmission Date: 20061013
  Serious: Yes (Hospitalization, Disabling, Other)
  Sender: FDA-Public Use
  Company Number: US-MERCK-0510USA02070

PATIENT
  Age: 53 Year
  Sex: Male
  Weight: 91 kg

DRUGS (30)
  1. VIOXX [Suspect]
     Route: 048
     Dates: start: 20000816, end: 20040324
  2. DARVOCET [Concomitant]
     Route: 065
  3. PYRIDOSTIGMINE BROMIDE [Concomitant]
     Route: 065
  4. BACLOFEN [Concomitant]
     Route: 065
  5. CELEBREX [Concomitant]
     Route: 065
  6. NEXIUM [Concomitant]
     Route: 065
  7. PEPCID [Concomitant]
     Route: 065
  8. IBUPROFEN [Concomitant]
     Route: 065
  9. NYSTATIN USP (PADDOCK) [Concomitant]
     Route: 065
  10. LUMIGAN [Concomitant]
     Route: 065
  11. NASACORT AQ [Concomitant]
     Route: 065
  12. ASTELIN [Concomitant]
     Route: 065
  13. ENTEX (NEW FORMULA) [Concomitant]
     Route: 065
  14. ALPHAGAN [Concomitant]
     Route: 065
  15. LOVENOX [Concomitant]
     Route: 065
  16. SINGULAIR [Concomitant]
     Route: 048
  17. BIAXIN [Concomitant]
     Route: 065
  18. KETOROLAC TROMETHAMINE [Concomitant]
     Route: 065
  19. HYZAAR [Concomitant]
     Route: 048
  20. VIAGRA [Concomitant]
     Route: 065
  21. ZETIA [Concomitant]
     Route: 048
  22. MAGNESIUM OXIDE [Concomitant]
     Route: 065
  23. CLOTRIMAZOLE [Concomitant]
     Route: 065
  24. TEMAZEPAM [Concomitant]
     Route: 065
  25. OS-CAL [Concomitant]
     Route: 065
  26. KEFLEX [Concomitant]
     Route: 065
  27. SEREVENT [Concomitant]
     Route: 055
  28. HYDROCODONE BITARTRATE [Concomitant]
     Route: 065
  29. ZOCOR [Concomitant]
     Route: 048
     Dates: start: 20000201, end: 20011201
  30. CARBAMAZEPINE [Concomitant]
     Route: 065

REACTIONS (20)
  - ARTERIOSCLEROSIS [None]
  - ATELECTASIS [None]
  - CARDIAC DISORDER [None]
  - CHEST PAIN [None]
  - COAGULOPATHY [None]
  - CORONARY ARTERY DISEASE [None]
  - CORONARY ARTERY STENOSIS [None]
  - DIABETES MELLITUS [None]
  - DIVERTICULITIS [None]
  - DYSPNOEA [None]
  - GASTROINTESTINAL DISORDER [None]
  - GASTROOESOPHAGEAL REFLUX DISEASE [None]
  - GLAUCOMA [None]
  - HAEMATURIA [None]
  - INTESTINAL OBSTRUCTION [None]
  - MYOCARDIAL INFARCTION [None]
  - MYOPATHY [None]
  - OEDEMA PERIPHERAL [None]
  - OESOPHAGEAL CANDIDIASIS [None]
  - OESOPHAGEAL SPASM [None]
